FAERS Safety Report 8593818 (Version 2)
Quarter: 2014Q1

REPORT INFORMATION
  Report Type: Spontaneous
  Country: US (occurrence: None)
  Receive Date: 20120323
  Receipt Date: 20130305
  Transmission Date: 20141002
  Serious: Yes (Other)
  Sender: FDA-Public Use
  Company Number: 163-21880-11030407

PATIENT
  Age: 65 Year
  Sex: Male

DRUGS (13)
  1. REVLIMID (LENALIDOMIDE) (CAPSULES) [Suspect]
     Indication: AMYLOIDOSIS
     Dosage: 10 MG, 21 IN 21 D, PO
     Route: 048
     Dates: start: 201101
  2. DIFLUCAN (FLUCONAZOLE) [Suspect]
     Indication: PRODUCT USED FOR UNKNOWN INDICATION
     Dosage: 15 MG, 1 IN 1 D, PO
     Dates: start: 201005
  3. COUMADIN (WARFARIN SODIUM) (UNKNOWN) [Suspect]
     Indication: PRODUCT USED FOR UNKNOWN INDICATION
     Dosage: 400 MG, QD,
  4. LASIX (FUROSEMIDE) (UNKNOWN) [Concomitant]
  5. CRESTOR (ROSUVASTATIN) (UNKNOWN) [Concomitant]
  6. COREG (CARVEDILOL) (UNKNOWN) [Concomitant]
  7. ZOLOFT (SERTRALINE HYDROCHLORIDE) (UNKNOWN) [Concomitant]
  8. CARDURA (DOXAZOSIN MESILATE) (UNKNOWN) [Concomitant]
  9. DEXAMETHASONE (DEXAMETHASONE) (UNKNOWN) [Concomitant]
  10. HYDRALAZINE (HYDRALAZINE) (UNKNOWN) [Concomitant]
  11. COLACE (DOCUSATE SODIUM) (UNKNOWN) [Concomitant]
  12. PHOSLO (CALCIUM ACETATE) (UNKNOWN) [Concomitant]
  13. XANAX (ALPRAZOLAM) (0.025, UNKNOWN) [Concomitant]

REACTIONS (2)
  - Thrombocytopenia [None]
  - Platelet count decreased [None]
